FAERS Safety Report 8884005 (Version 1)
Quarter: 2012Q4

REPORT INFORMATION
  Report Type: 
  Country: US (occurrence: US)
  Receive Date: 20121102
  Receipt Date: 20121102
  Transmission Date: 20130627
  Serious: No
  Sender: FDA-Public Use
  Company Number: US-009507513-1210USA009823

PATIENT
  Sex: Female

DRUGS (2)
  1. ZEGERID OTC CAPSULES [Suspect]
     Indication: PRODUCT USED FOR UNKNOWN INDICATION
     Dosage: 20 mg, qd
     Route: 048
     Dates: start: 20120821, end: 20120828
  2. PREVACID [Concomitant]
     Indication: PRODUCT USED FOR UNKNOWN INDICATION

REACTIONS (4)
  - Diarrhoea [Unknown]
  - Chromaturia [Unknown]
  - Muscle spasms [Unknown]
  - Drug ineffective [Unknown]
